FAERS Safety Report 17500622 (Version 1)
Quarter: 2020Q1

REPORT INFORMATION
  Report Type: Spontaneous
  Country: US (occurrence: US)
  Receive Date: 20200224
  Receipt Date: 20200224
  Transmission Date: 20200409
  Serious: No
  Sender: FDA-Public Use
  Company Number: None

PATIENT
  Age: 67 Year
  Sex: Female

DRUGS (1)
  1. EPCLUSA [Suspect]
     Active Substance: SOFOSBUVIR\VELPATASVIR
     Dosage: ?          OTHER DOSE:400/100 DF;?
     Route: 048
     Dates: start: 201908, end: 201910

REACTIONS (2)
  - Product dose omission [None]
  - Treatment failure [None]

NARRATIVE: CASE EVENT DATE: 20191030
